FAERS Safety Report 7807625-1 (Version None)
Quarter: 2011Q4

REPORT INFORMATION
  Report Type: 
  Country: None (occurrence: None)
  Receive Date: 20111011
  Receipt Date: 20110930
  Transmission Date: 20120403
  Serious: Yes (Death)
  Sender: FDA-Public Use
  Company Number: JP-AMGEN-JPNCT2011026870

PATIENT
  Age: 75 Year
  Sex: Female
  Weight: 52 kg

DRUGS (13)
  1. LEVOLEUCOVORIN CALCIUM [Concomitant]
     Indication: COLORECTAL CANCER
     Route: 041
     Dates: start: 20101006, end: 20101025
  2. FLUOROURACIL [Concomitant]
     Indication: COLORECTAL CANCER
     Route: 041
     Dates: start: 20101006, end: 20101025
  3. RENOPENT [Concomitant]
     Dosage: UNK
     Route: 048
  4. OXYCONTIN [Concomitant]
     Dosage: UNK
     Route: 048
  5. ACETAMINOPHEN [Concomitant]
     Dosage: UNK
     Route: 048
  6. PANPYOTIN [Concomitant]
     Dosage: UNK
     Route: 048
  7. GASMOTIN [Concomitant]
     Dosage: UNK
     Route: 048
  8. PANITUMUMAB [Suspect]
     Indication: COLORECTAL CANCER
     Dosage: 6 MG/KG, Q2WK
     Route: 041
     Dates: start: 20101006, end: 20101115
  9. CORTICOSTEROIDS [Concomitant]
     Indication: PROPHYLAXIS
     Dosage: UNK
     Route: 065
  10. LANSOPRAZOLE [Concomitant]
     Dosage: UNK
     Route: 048
  11. TRICHLORMETHIAZIDE [Concomitant]
     Dosage: UNK
     Route: 048
  12. IRINOTECAN HCL [Concomitant]
     Indication: COLORECTAL CANCER
     Route: 041
     Dates: start: 20101006, end: 20101025
  13. MAGNESIUM OXIDE [Concomitant]
     Dosage: UNK
     Route: 048

REACTIONS (2)
  - HYPERMAGNESAEMIA [None]
  - COLORECTAL CANCER [None]
